FAERS Safety Report 5243982-0 (Version None)
Quarter: 2007Q1

REPORT INFORMATION
  Report Type: 
  Country: None (occurrence: None)
  Receive Date: 20070220
  Receipt Date: 20070220
  Transmission Date: 20070707
  Serious: Yes (Other)
  Sender: FDA-Public Use
  Company Number: None

PATIENT
  Sex: Male
  Weight: 1.3 kg

DRUGS (1)
  1. NAFCILLIN SODIUM [Suspect]
     Indication: STAPHYLOCOCCAL INFECTION
     Dosage: 58MG EVERY 12 HOURS IV BOLUS
     Route: 040
     Dates: start: 20070213, end: 20070215

REACTIONS (3)
  - ANURIA [None]
  - NEPHRITIS INTERSTITIAL [None]
  - RENAL TUBULAR NECROSIS [None]
